FAERS Safety Report 13478252 (Version 2)
Quarter: 2017Q2

REPORT INFORMATION
  Report Type: Spontaneous
  Country: JP (occurrence: JP)
  Receive Date: 20170425
  Receipt Date: 20170524
  Transmission Date: 20170830
  Serious: Yes (Other)
  Sender: FDA-Public Use
  Company Number: JP-TEVA-2017-JP-001153J

PATIENT
  Age: 79 Year
  Sex: Male

DRUGS (3)
  1. PREDONINE [Concomitant]
     Active Substance: PREDNISOLONE
     Indication: RHEUMATIC DISORDER
     Route: 048
  2. LYRICA [Concomitant]
     Active Substance: PREGABALIN
     Indication: PAIN
     Route: 048
  3. SALAZOSULFAPYRIDINE ENTERIC COATED TABLET 250MG ^TEVA^ [Suspect]
     Active Substance: SULFASALAZINE
     Indication: RHEUMATIC DISORDER
     Dosage: 2000 MILLIGRAM DAILY;
     Route: 048
     Dates: start: 200612, end: 20170410

REACTIONS (3)
  - Nephrolithiasis [Unknown]
  - Ureterolithiasis [Not Recovered/Not Resolved]
  - Calculus urinary [Unknown]
